FAERS Safety Report 19325848 (Version 1)
Quarter: 2021Q2

REPORT INFORMATION
  Report Type: Spontaneous
  Country: US (occurrence: US)
  Receive Date: 20210528
  Receipt Date: 20210528
  Transmission Date: 20210717
  Serious: No
  Sender: FDA-Public Use
  Company Number: US-PFIZER INC-2021386244

PATIENT
  Age: 63 Year
  Sex: Female

DRUGS (1)
  1. XELJANZ XR [Suspect]
     Active Substance: TOFACITINIB CITRATE
     Indication: RHEUMATOID ARTHRITIS
     Dosage: 11 MG, DAILY
     Route: 048
     Dates: start: 20200426

REACTIONS (11)
  - Oral disorder [Recovered/Resolved]
  - Nasal congestion [Unknown]
  - Joint noise [Unknown]
  - Sensitivity to weather change [Unknown]
  - Back pain [Unknown]
  - Arthralgia [Unknown]
  - Cough [Unknown]
  - Skin discolouration [Unknown]
  - Peripheral swelling [Unknown]
  - Pain in extremity [Unknown]
  - Tongue disorder [Unknown]

NARRATIVE: CASE EVENT DATE: 2020
